FAERS Safety Report 9187808 (Version 1)
Quarter: 2013Q1

REPORT INFORMATION
  Report Type: Spontaneous
  Country: US (occurrence: US)
  Receive Date: 20130325
  Receipt Date: 20130325
  Transmission Date: 20140127
  Serious: No
  Sender: FDA-Public Use
  Company Number: US-MYLANLABS-2012S1009591

PATIENT
  Age: 63 Year
  Sex: Female

DRUGS (7)
  1. FENTANYL TRANSDERMAL SYSTEM [Suspect]
     Indication: MUSCULOSKELETAL PAIN
     Dosage: CHANGED Q48H
     Route: 062
  2. FENTANYL TRANSDERMAL SYSTEM [Suspect]
     Indication: NECK PAIN
     Dosage: CHANGED Q48H
     Route: 062
  3. THYROID HORMONES [Concomitant]
     Route: 048
  4. XANAX [Concomitant]
     Route: 048
  5. METOPROLOL [Concomitant]
     Route: 048
  6. PRISTIQ [Concomitant]
     Route: 048
  7. PROGESTERONE [Concomitant]
     Route: 048

REACTIONS (4)
  - Drug ineffective [Not Recovered/Not Resolved]
  - Musculoskeletal pain [Not Recovered/Not Resolved]
  - Neck pain [Not Recovered/Not Resolved]
  - Drug withdrawal syndrome [Not Recovered/Not Resolved]
